FAERS Safety Report 7335687-7 (Version None)
Quarter: 2011Q1

REPORT INFORMATION
  Report Type: 
  Country: None (occurrence: None)
  Receive Date: 20110307
  Receipt Date: 20110215
  Transmission Date: 20110831
  Serious: Yes (Hospitalization)
  Sender: FDA-Public Use
  Company Number: A0914007A

PATIENT
  Sex: Female
  Weight: 70.5 kg

DRUGS (8)
  1. MORPHINE [Concomitant]
     Indication: PAIN
     Dates: start: 20110104
  2. NATURAL TEARS [Concomitant]
     Dates: start: 20101201
  3. PARIET [Concomitant]
     Dates: start: 20000101
  4. CALCIUM [Concomitant]
     Indication: SUPPLEMENTATION THERAPY
     Dates: start: 20090101
  5. VITAMIN D [Concomitant]
     Indication: SUPPLEMENTATION THERAPY
     Dates: start: 20090101
  6. PACLITAXEL [Suspect]
     Dosage: 145MG WEEKLY
     Route: 042
     Dates: start: 20110127
  7. ESTRING [Concomitant]
     Dates: start: 20030101
  8. LAPATINIB [Suspect]
     Dosage: 1250MG PER DAY
     Route: 048
     Dates: start: 20110127

REACTIONS (1)
  - APPENDICITIS PERFORATED [None]
